FAERS Safety Report 9450597 (Version 1)
Quarter: 2013Q3

REPORT INFORMATION
  Report Type: Spontaneous
  Country: US (occurrence: US)
  Receive Date: 20130809
  Receipt Date: 20130809
  Transmission Date: 20140515
  Serious: Yes (Hospitalization)
  Sender: FDA-Public Use
  Company Number: US-BAYER-2013-095325

PATIENT
  Age: 38 Year
  Sex: Female
  Weight: 63.45 kg

DRUGS (6)
  1. YASMIN [Suspect]
  2. CLARINEX [DESLORATADINE] [Concomitant]
     Dosage: 5 MG, 1 QD
     Route: 048
     Dates: start: 20020328
  3. AUGMENTIN [Concomitant]
     Dosage: 875 MG, 1 BID
     Route: 048
     Dates: start: 20020328
  4. NASONEX [Concomitant]
     Dosage: 2 SPRAYS QD EACH NOSTRIL
     Dates: start: 20020328
  5. CLARITIN-D [Concomitant]
     Dosage: UNK
     Dates: start: 20011215, end: 20030113
  6. ALBUTEROL [Concomitant]

REACTIONS (1)
  - Pulmonary embolism [Not Recovered/Not Resolved]
